FAERS Safety Report 6137285-X (Version None)
Quarter: 2009Q1

REPORT INFORMATION
  Report Type: 
  Country: None (occurrence: None)
  Receive Date: 20090326
  Receipt Date: 20090326
  Transmission Date: 20090719
  Serious: Yes (Other)
  Sender: FDA-Public Use
  Company Number: None

PATIENT
  Age: 75 Year
  Sex: Male
  Weight: 77.5651 kg

DRUGS (2)
  1. TAXOTERE [Suspect]
     Dosage: 60MG IVSS
     Route: 042
     Dates: start: 20090310
  2. TAXOTERE [Suspect]
     Dosage: 60MG IVSS
     Route: 042
     Dates: start: 20090317

REACTIONS (6)
  - AMNESIA [None]
  - BLOOD PRESSURE SYSTOLIC INCREASED [None]
  - CONVULSION [None]
  - COUGH [None]
  - FEELING HOT [None]
  - UNRESPONSIVE TO STIMULI [None]
